FAERS Safety Report 6473433-X (Version None)
Quarter: 2009Q4

REPORT INFORMATION
  Report Type: 
  Country: None (occurrence: None)
  Receive Date: 20091204
  Receipt Date: 20090119
  Transmission Date: 20100525
  Serious: Yes (Hospitalization, Other)
  Sender: FDA-Public Use
  Company Number: DE-ELI_LILLY_AND_COMPANY-DE200812003921

PATIENT
  Sex: Male
  Weight: 70 kg

DRUGS (9)
  1. GEMZAR [Suspect]
     Indication: BILE DUCT CANCER
     Dosage: 1650 MG, NEARLY 3TIMES A MONTH
     Route: 042
     Dates: start: 20080306, end: 20081103
  2. ASPIRIN COMPLEX [Concomitant]
     Indication: HEADACHE
     Dosage: 1 D/F, DAILY (1/D)
     Route: 048
     Dates: start: 20081023
  3. DEXA [Concomitant]
     Indication: VOMITING
     Dosage: 8 MG, NEARLY THREE TIMES A MONTH
     Route: 042
     Dates: start: 20080306
  4. ERYPO [Concomitant]
     Dosage: 40000 IU, WEEKLY (1/W)
     Route: 058
     Dates: start: 20080603
  5. KEVATRIL [Concomitant]
     Indication: NAUSEA
     Dosage: AINGLE DOSE DIFFERENT NEARLY THREE TIMES A MONTH
     Route: 042
     Dates: start: 20080603
  6. MCP [Concomitant]
     Indication: NAUSEA
     Dosage: 70 GTT, DAILY (1/D)
     Route: 048
     Dates: start: 20081030
  7. NEUPOGEN [Concomitant]
     Dosage: 48000000 IU, DAILY (1/D)
     Route: 058
  8. PARACETAMOL [Concomitant]
     Indication: PAIN
     Dosage: 1750 MG, DAILY (1/D)
     Route: 048
     Dates: start: 20081030
  9. URSO FALK [Concomitant]
     Dosage: 250 MG, 2/D
     Route: 048

REACTIONS (2)
  - FOOT FRACTURE [None]
  - HAEMOLYTIC URAEMIC SYNDROME [None]
